FAERS Safety Report 9845415 (Version 1)
Quarter: 2014Q1

REPORT INFORMATION
  Report Type: Spontaneous
  Country: US (occurrence: None)
  Receive Date: 20140122
  Receipt Date: 20140122
  Transmission Date: 20141002
  Serious: Yes (Other)
  Sender: FDA-Public Use
  Company Number: 2014-US-000145

PATIENT
  Age: 47 Year
  Sex: Female
  Weight: 74.8 kg

DRUGS (3)
  1. XYREM [Suspect]
     Indication: NARCOLEPSY
     Dosage: 2.25 G, TID, ORAL
     Route: 048
     Dates: start: 200711
  2. ADDERALL (AMFETAMINE ASPARTATE, AMFETAMINE SULFATE, DEXAMFETAMINE SACCHARATE, DEXAMFETAMINE SULFATE) [Concomitant]
  3. FLUOXETINE (FLUOXETINE HYDROCHLORIDE) [Concomitant]

REACTIONS (1)
  - Nephrolithiasis [None]
